FAERS Safety Report 11461491 (Version 1)
Quarter: 2015Q3

REPORT INFORMATION
  Report Type: Spontaneous
  Country: US (occurrence: US)
  Receive Date: 20150831
  Receipt Date: 20150831
  Transmission Date: 20151125
  Serious: No
  Sender: FDA-Public Use
  Company Number: US-ELI_LILLY_AND_COMPANY-US201008000320

PATIENT
  Age: 63 Year
  Sex: Female

DRUGS (4)
  1. CYMBALTA [Suspect]
     Active Substance: DULOXETINE HYDROCHLORIDE
     Indication: NEURALGIA
     Dosage: 30 MG, DAILY (1/D)
  2. ASPIRIN. [Concomitant]
     Active Substance: ASPIRIN
  3. ACEBUTOLOL [Concomitant]
     Active Substance: ACEBUTOLOL
  4. FLONASE [Concomitant]
     Active Substance: FLUTICASONE PROPIONATE

REACTIONS (6)
  - Sensory disturbance [Unknown]
  - Nausea [Recovered/Resolved]
  - Restlessness [Unknown]
  - Insomnia [Unknown]
  - Somnolence [Recovered/Resolved]
  - Off label use [Recovered/Resolved]
